FAERS Safety Report 4971580-2 (Version None)
Quarter: 2006Q2

REPORT INFORMATION
  Report Type: 
  Country: None (occurrence: None)
  Receive Date: 20060406
  Receipt Date: 20060323
  Transmission Date: 20061013
  Serious: Yes (Death)
  Sender: FDA-Public Use
  Company Number: GB200511000189

PATIENT
  Age: 75 Year
  Sex: Female
  Weight: 53 kg

DRUGS (8)
  1. CYMBALTA [Suspect]
     Indication: DEPRESSION
     Dosage: 60 MG, DAILY (1/D); SEE IMAGE
     Dates: start: 20051010
  2. CYMBALTA [Suspect]
     Indication: DEPRESSION
     Dosage: 60 MG, DAILY (1/D); SEE IMAGE
     Dates: start: 20051019
  3. NITRAZEPAM [Concomitant]
  4. HALOPERIDOL [Concomitant]
  5. CO-CODAMOL (CODEINE PHOSPHATE, PARACETAMOL) [Concomitant]
  6. FLUCONAZOLE [Concomitant]
  7. MICONAZOLE NITRATE [Concomitant]
  8. SENNA (SENNA) [Concomitant]

REACTIONS (5)
  - ELECTROCONVULSIVE THERAPY [None]
  - FLUID INTAKE REDUCED [None]
  - OEDEMA PERIPHERAL [None]
  - SUDDEN DEATH [None]
  - VENOUS PRESSURE JUGULAR INCREASED [None]
